FAERS Safety Report 22389892 (Version 1)
Quarter: 2023Q2

REPORT INFORMATION
  Report Type: Spontaneous
  Country: JP (occurrence: JP)
  Receive Date: 20230531
  Receipt Date: 20230531
  Transmission Date: 20230722
  Serious: Yes (Hospitalization, Other)
  Sender: FDA-Public Use
  Company Number: JP-OTSUKA-2023_013752

PATIENT
  Age: 42 Year
  Sex: Male
  Weight: 101.8 kg

DRUGS (19)
  1. ICLUSIG [Suspect]
     Active Substance: PONATINIB
     Indication: Philadelphia positive acute lymphocytic leukaemia
     Dosage: 45 MILLIGRAM, QD
     Route: 048
     Dates: start: 20230116
  2. PEGFILGRASTIM [Suspect]
     Active Substance: PEGFILGRASTIM
     Indication: Product used for unknown indication
     Dosage: UNK
     Route: 058
     Dates: start: 20230314, end: 20230314
  3. LEVOFLOXACIN HEMIHYDRATE [Concomitant]
     Active Substance: LEVOFLOXACIN
     Indication: Product used for unknown indication
     Dosage: UNK
     Route: 065
     Dates: start: 20230315
  4. FEXOFENADINE HYDROCHLORIDE [Concomitant]
     Active Substance: FEXOFENADINE HYDROCHLORIDE
     Indication: Product used for unknown indication
     Dosage: UNK
     Route: 065
     Dates: start: 20230223
  5. VALACYCLOVIR HYDROCHLORIDE [Concomitant]
     Active Substance: VALACYCLOVIR HYDROCHLORIDE
     Indication: Product used for unknown indication
     Dosage: UNK
     Route: 065
     Dates: start: 202206
  6. SULFAMETHOXAZOLE\TRIMETHOPRIM [Concomitant]
     Active Substance: SULFAMETHOXAZOLE\TRIMETHOPRIM
     Indication: Product used for unknown indication
     Dosage: UNK
     Route: 065
     Dates: start: 202207
  7. DECADRON [Concomitant]
     Active Substance: DEXAMETHASONE
     Indication: Product used for unknown indication
     Dosage: UNK
     Route: 065
     Dates: start: 20230320, end: 20230323
  8. ASPIRIN\LANSOPRAZOLE [Concomitant]
     Active Substance: ASPIRIN\LANSOPRAZOLE
     Indication: Product used for unknown indication
     Dosage: UNK
     Route: 065
     Dates: start: 20230315
  9. CYCLOPHOSPHAMIDE [Concomitant]
     Active Substance: CYCLOPHOSPHAMIDE
     Indication: Philadelphia positive acute lymphocytic leukaemia
     Dosage: UNK
     Route: 065
     Dates: start: 20230118, end: 20230118
  10. CYCLOPHOSPHAMIDE [Concomitant]
     Active Substance: CYCLOPHOSPHAMIDE
     Dosage: UNK
     Route: 065
     Dates: start: 20230310, end: 20230310
  11. VINCRISTINE SULFATE [Concomitant]
     Active Substance: VINCRISTINE SULFATE
     Indication: Philadelphia positive acute lymphocytic leukaemia
     Dosage: UNK
     Route: 065
     Dates: start: 20230118, end: 20230118
  12. VINCRISTINE SULFATE [Concomitant]
     Active Substance: VINCRISTINE SULFATE
     Dosage: UNK
     Route: 065
     Dates: start: 20230310, end: 20230310
  13. DOXORUBICIN HYDROCHLORIDE [Concomitant]
     Active Substance: DOXORUBICIN HYDROCHLORIDE
     Indication: Philadelphia positive acute lymphocytic leukaemia
     Dosage: UNK
     Route: 065
     Dates: start: 20230118, end: 20230118
  14. DOXORUBICIN HYDROCHLORIDE [Concomitant]
     Active Substance: DOXORUBICIN HYDROCHLORIDE
     Dosage: UNK
     Route: 065
     Dates: start: 20230310, end: 20230310
  15. DEXAMETHASONE [Concomitant]
     Active Substance: DEXAMETHASONE
     Indication: Philadelphia positive acute lymphocytic leukaemia
     Dosage: UNK
     Route: 065
     Dates: start: 20230118, end: 20230118
  16. DEXAMETHASONE [Concomitant]
     Active Substance: DEXAMETHASONE
     Dosage: UNK
     Route: 065
     Dates: start: 20230310, end: 20230310
  17. METHOTREXATE [Concomitant]
     Active Substance: METHOTREXATE
     Indication: Philadelphia positive acute lymphocytic leukaemia
     Dosage: UNK
     Route: 065
     Dates: start: 20230214, end: 20230214
  18. CYTARABINE [Concomitant]
     Active Substance: CYTARABINE
     Indication: Philadelphia positive acute lymphocytic leukaemia
     Dosage: UNK
     Route: 065
  19. CYTARABINE [Concomitant]
     Active Substance: CYTARABINE
     Dosage: UNK
     Route: 065
     Dates: start: 20230214, end: 20230214

REACTIONS (4)
  - Troponin I increased [Recovered/Resolved]
  - Acute coronary syndrome [Recovered/Resolved]
  - Angina unstable [Unknown]
  - Bone pain [Recovering/Resolving]

NARRATIVE: CASE EVENT DATE: 20230323
